FAERS Safety Report 23494732 (Version 1)
Quarter: 2024Q1

REPORT INFORMATION
  Report Type: Spontaneous
  Country: US (occurrence: None)
  Receive Date: 20240206
  Receipt Date: 20240206
  Transmission Date: 20240409
  Serious: Yes (Other)
  Sender: FDA-Public Use
  Company Number: None

PATIENT
  Age: 50 Year
  Sex: Female
  Weight: 87.75 kg

DRUGS (6)
  1. PAXLOVID [Suspect]
     Active Substance: NIRMATRELVIR\RITONAVIR
     Indication: COVID-19
     Dates: start: 20240131, end: 20240203
  2. FLONASE [Concomitant]
     Active Substance: FLUTICASONE PROPIONATE
  3. MUCINEX [Concomitant]
     Active Substance: GUAIFENESIN
  4. Tylenol Cold medicine [Concomitant]
  5. COUGH DROPS [Concomitant]
     Active Substance: MENTHOL
  6. VITAMINS [Concomitant]
     Active Substance: VITAMINS

REACTIONS (6)
  - Spinal pain [None]
  - Gait disturbance [None]
  - Pain [None]
  - Arthralgia [None]
  - COVID-19 [None]
  - Therapy cessation [None]

NARRATIVE: CASE EVENT DATE: 20240202
